FAERS Safety Report 8138093-0 (Version None)
Quarter: 2012Q1

REPORT INFORMATION
  Report Type: 
  Country: None (occurrence: None)
  Receive Date: 20120215
  Receipt Date: 20120215
  Transmission Date: 20120608
  Serious: Yes (Other)
  Sender: FDA-Public Use
  Company Number: None

PATIENT
  Sex: Female
  Weight: 58.967 kg

DRUGS (1)
  1. DEPO-PROVERA [Suspect]
     Indication: CONTRACEPTION
     Dates: start: 20010101, end: 20100101

REACTIONS (4)
  - HORMONE LEVEL ABNORMAL [None]
  - DRUG INEFFECTIVE [None]
  - HAND FRACTURE [None]
  - OSTEOPENIA [None]
